FAERS Safety Report 10414085 (Version 2)
Quarter: 2014Q3

REPORT INFORMATION
  Report Type: Spontaneous
  Country: US (occurrence: US)
  Receive Date: 20140827
  Receipt Date: 20140827
  Transmission Date: 20150326
  Serious: No
  Sender: FDA-Public Use
  Company Number: US-ASTRAZENECA-2013SE69082

PATIENT
  Age: 36 Year
  Sex: Female

DRUGS (3)
  1. SINGULAIR [Concomitant]
     Active Substance: MONTELUKAST SODIUM
     Indication: MULTIPLE ALLERGIES
     Route: 048
     Dates: start: 2007
  2. SYMBICORT [Suspect]
     Active Substance: BUDESONIDE\FORMOTEROL FUMARATE DIHYDRATE
     Indication: ASTHMA
     Dosage: 160/ 4.5 MCG, 2 PUFFS BID
     Route: 055
     Dates: start: 2007
  3. DIOVAN HTC [Concomitant]
     Indication: HYPERTENSION
     Route: 048
     Dates: start: 2001

REACTIONS (2)
  - Dyspnoea [Unknown]
  - Circumstance or information capable of leading to medication error [Unknown]

NARRATIVE: CASE EVENT DATE: 2007
